FAERS Safety Report 11525684 (Version 2)
Quarter: 2015Q4

REPORT INFORMATION
  Report Type: Spontaneous
  Country: US (occurrence: US)
  Receive Date: 20150918
  Receipt Date: 20151208
  Transmission Date: 20160304
  Serious: Yes (Hospitalization, Other)
  Sender: FDA-Public Use
  Company Number: US-ASTRAZENECA-2015SE88853

PATIENT
  Age: 663 Month
  Sex: Male
  Weight: 61.2 kg

DRUGS (11)
  1. TAMSULOSIN [Concomitant]
     Active Substance: TAMSULOSIN
     Indication: PROSTATIC DISORDER
     Route: 048
  2. SEROQUEL [Suspect]
     Active Substance: QUETIAPINE FUMARATE
     Indication: SCHIZOPHRENIA
     Route: 048
     Dates: start: 201504, end: 201511
  3. BENZTROPINE [Concomitant]
     Active Substance: BENZTROPINE
  4. NASONES [Concomitant]
     Indication: MULTIPLE ALLERGIES
     Dosage: 2 SPRAYS; DAILY
     Route: 045
     Dates: start: 201501
  5. FLUPHENAZINE [Concomitant]
     Active Substance: FLUPHENAZINE
     Indication: PARKINSON^S DISEASE
  6. FINASTERIDE. [Concomitant]
     Active Substance: FINASTERIDE
     Indication: PROSTATIC DISORDER
     Route: 048
  7. LALANOPROST [Concomitant]
     Indication: HYPERTENSION
     Dosage: UNKNOWN
     Route: 061
  8. SEROQUEL [Suspect]
     Active Substance: QUETIAPINE FUMARATE
     Indication: SCHIZOPHRENIA
     Route: 048
     Dates: start: 201407, end: 201504
  9. NASONES [Concomitant]
     Indication: RHINITIS
     Dosage: 2 SPRAYS; DAILY
     Route: 045
     Dates: start: 201501
  10. ATORVASTATIN [Concomitant]
     Active Substance: ATORVASTATIN
     Indication: BLOOD CHOLESTEROL ABNORMAL
     Route: 048
  11. FLUPHENAZINE [Concomitant]
     Active Substance: FLUPHENAZINE
     Indication: ILL-DEFINED DISORDER

REACTIONS (12)
  - Stress [Not Recovered/Not Resolved]
  - Parkinsonism [Unknown]
  - Off label use [Recovered/Resolved]
  - Malaise [Unknown]
  - Restlessness [Unknown]
  - Drug ineffective [Not Recovered/Not Resolved]
  - Overdose [Unknown]
  - Cerebrovascular accident [Recovered/Resolved]
  - Arthralgia [Unknown]
  - Transient ischaemic attack [Recovered/Resolved]
  - Insomnia [Not Recovered/Not Resolved]
  - Anxiety [Not Recovered/Not Resolved]

NARRATIVE: CASE EVENT DATE: 201407
